FAERS Safety Report 5153068-1 (Version None)
Quarter: 2006Q4

REPORT INFORMATION
  Report Type: 
  Country: None (occurrence: None)
  Receive Date: 20061117
  Receipt Date: 20061108
  Transmission Date: 20070319
  Serious: Yes (Hospitalization)
  Sender: FDA-Public Use
  Company Number: IT-ABBOTT-06P-083-0349649-00

PATIENT
  Sex: Male

DRUGS (3)
  1. CLARITHROMYCIN [Suspect]
     Indication: HELICOBACTER INFECTION
     Route: 048
  2. AMOXICILLIN [Suspect]
     Indication: HELICOBACTER INFECTION
  3. OMEPRAZOLE [Suspect]
     Indication: HELICOBACTER INFECTION

REACTIONS (2)
  - ERYTHEMA [None]
  - GENERALISED OEDEMA [None]
